FAERS Safety Report 19899584 (Version 2)
Quarter: 2021Q4

REPORT INFORMATION
  Report Type: Spontaneous
  Country: DK (occurrence: DK)
  Receive Date: 20210929
  Receipt Date: 20211004
  Transmission Date: 20220303
  Serious: Yes (Other)
  Sender: FDA-Public Use
  Company Number: DK-002147023-NVSC2021DK107976

PATIENT
  Age: 69 Year
  Sex: Male

DRUGS (2)
  1. ENALAPRIL [Suspect]
     Active Substance: ENALAPRIL
     Indication: Product used for unknown indication
     Dosage: 5 MG (DECREASED TO 5 MG)
     Route: 065
     Dates: start: 20210403
  2. ENALAPRIL [Suspect]
     Active Substance: ENALAPRIL
     Dosage: UNK
     Route: 065

REACTIONS (2)
  - Hallucination [Recovered/Resolved]
  - Adverse event [Recovered/Resolved]
